FAERS Safety Report 19510472 (Version 1)
Quarter: 2021Q3

REPORT INFORMATION
  Report Type: Spontaneous
  Country: US (occurrence: US)
  Receive Date: 20210708
  Receipt Date: 20210708
  Transmission Date: 20211014
  Serious: No
  Sender: FDA-Public Use
  Company Number: US-B.I. PHARMACEUTICALS,INC./RIDGEFIELD-2021-BI-114242

PATIENT
  Age: 81 Year
  Sex: Female

DRUGS (1)
  1. STIOLTO RESPIMAT [Suspect]
     Active Substance: OLODATEROL HYDROCHLORIDE\TIOTROPIUM BROMIDE MONOHYDRATE
     Indication: ASTHMA
     Dosage: 2 PUFFS DAILY
     Route: 065
     Dates: start: 20210624

REACTIONS (6)
  - Product administration error [Unknown]
  - Croup infectious [Not Recovered/Not Resolved]
  - Off label use [Unknown]
  - Wheezing [Not Recovered/Not Resolved]
  - Diarrhoea [Recovered/Resolved]
  - Chest discomfort [Not Recovered/Not Resolved]

NARRATIVE: CASE EVENT DATE: 202107
